FAERS Safety Report 6257361-0 (Version None)
Quarter: 2009Q3

REPORT INFORMATION
  Report Type: 
  Country: None (occurrence: None)
  Receive Date: 20090706
  Receipt Date: 20090630
  Transmission Date: 20100115
  Serious: Yes (Death, Life-Threatening, Hospitalization, Other)
  Sender: FDA-Public Use
  Company Number: PHHO2008DK08360

PATIENT
  Sex: Male

DRUGS (3)
  1. NEORAL [Suspect]
     Indication: HEART TRANSPLANT
     Dosage: UNK
     Route: 048
  2. RAD 666 RAD++PTR [Suspect]
     Indication: HEART TRANSPLANT
     Dosage: 0.25 MG, BID
     Route: 048
     Dates: start: 20080216, end: 20080718
  3. CELLCEPT [Suspect]

REACTIONS (6)
  - CONCOMITANT DISEASE PROGRESSION [None]
  - COUGH [None]
  - LUNG INFILTRATION [None]
  - LUNG NEOPLASM MALIGNANT [None]
  - METASTASES TO LIVER [None]
  - SURGERY [None]
